FAERS Safety Report 7362150-X (Version None)
Quarter: 2011Q1

REPORT INFORMATION
  Report Type: 
  Country: None (occurrence: None)
  Receive Date: 20110318
  Receipt Date: 20110308
  Transmission Date: 20110831
  Serious: Yes (Hospitalization, Other)
  Sender: FDA-Public Use
  Company Number: US-JNJFOC-20061104231

PATIENT
  Sex: Female
  Weight: 47.6 kg

DRUGS (11)
  1. MERCAPTOPURINE [Concomitant]
     Indication: CROHN'S DISEASE
  2. REMICADE [Suspect]
     Dosage: INDUCTION
     Route: 042
  3. PENTASA [Concomitant]
  4. MESALAMINE [Concomitant]
     Indication: CROHN'S DISEASE
  5. PREDNISONE [Concomitant]
  6. BUDESONIDE [Concomitant]
     Indication: CROHN'S DISEASE
  7. REMICADE [Suspect]
     Indication: CROHN'S DISEASE
     Dosage: MAINTENANCE   TOTAL OF 8 INFUSIONS
     Route: 042
  8. MERCAPTOPURINE [Concomitant]
  9. PREVACID [Concomitant]
  10. PREDNISONE [Concomitant]
     Indication: CROHN'S DISEASE
  11. MIRALAX [Concomitant]

REACTIONS (1)
  - HODGKIN'S DISEASE STAGE II [None]
